FAERS Safety Report 12114721 (Version 1)
Quarter: 2016Q1

REPORT INFORMATION
  Report Type: Report from Study
  Country: US (occurrence: US)
  Receive Date: 20160225
  Receipt Date: 20160225
  Transmission Date: 20160526
  Serious: Yes (Other)
  Sender: FDA-Public Use
  Company Number: US-GILEAD-2016-0200205

PATIENT
  Age: 72 Year
  Sex: Male

DRUGS (1)
  1. AMBRISENTAN [Suspect]
     Active Substance: AMBRISENTAN
     Indication: PRODUCT USED FOR UNKNOWN INDICATION
     Dosage: 10 MG, QD
     Route: 065
     Dates: start: 20130507

REACTIONS (7)
  - Presyncope [Unknown]
  - Tremor [Unknown]
  - Peripheral swelling [Unknown]
  - Somnambulism [Unknown]
  - Dyspnoea [Unknown]
  - Diaphragmatic paralysis [Unknown]
  - Fall [Unknown]
